FAERS Safety Report 5158591-1 (Version None)
Quarter: 2006Q4

REPORT INFORMATION
  Report Type: 
  Country: None (occurrence: None)
  Receive Date: 20061128
  Receipt Date: 20060613
  Transmission Date: 20070319
  Serious: Yes (Other)
  Sender: FDA-Public Use
  Company Number: JP-ELI_LILLY_AND_COMPANY-JP200606003946

PATIENT
  Age: 71 Year
  Sex: Female
  Weight: 52.4 kg

DRUGS (4)
  1. EVISTA [Suspect]
     Indication: OSTEOPOROSIS
     Dosage: 60 MG, DAILY (1/D)
     Route: 048
     Dates: start: 20051102, end: 20060607
  2. TERNELIN [Concomitant]
     Indication: TENSION HEADACHE
     Route: 048
     Dates: start: 20050909
  3. DEPAS [Concomitant]
     Indication: TENSION HEADACHE
     Route: 048
     Dates: start: 20050909
  4. DIOVANE [Concomitant]
     Indication: HYPERTENSION
     Dosage: 80 MG, 2/D
     Route: 048

REACTIONS (1)
  - PLATELET COUNT DECREASED [None]
